FAERS Safety Report 6063441-5 (Version None)
Quarter: 2009Q1

REPORT INFORMATION
  Report Type: 
  Country: None (occurrence: None)
  Receive Date: 20090203
  Receipt Date: 20090128
  Transmission Date: 20090719
  Serious: No
  Sender: FDA-Public Use
  Company Number: US-B.I. PHARMACEUTICALS,INC./RIDGEFIELD-2009-BP-01072BP

PATIENT
  Age: 58 Year
  Sex: Male

DRUGS (1)
  1. FLOMAX [Suspect]
     Indication: PROSTATOMEGALY
     Dosage: 1.2MG
     Route: 048
     Dates: start: 20090120, end: 20090125

REACTIONS (6)
  - BACK PAIN [None]
  - DIZZINESS [None]
  - HEADACHE [None]
  - NAUSEA [None]
  - SOMNOLENCE [None]
  - VISION BLURRED [None]
